FAERS Safety Report 7893000-0 (Version None)
Quarter: 2011Q4

REPORT INFORMATION
  Report Type: 
  Country: None (occurrence: None)
  Receive Date: 20111104
  Receipt Date: 20111026
  Transmission Date: 20120403
  Serious: Yes (Hospitalization)
  Sender: FDA-Public Use
  Company Number: NL-NAPPMUNDI-GBR-2011-0008992

PATIENT
  Sex: Male
  Weight: 95 kg

DRUGS (5)
  1. OMEPRAZOLE [Concomitant]
     Indication: ABDOMINAL PAIN UPPER
     Dosage: 20 MG, DAILY
     Route: 065
  2. TOLBUTAMIDE [Concomitant]
     Indication: DIABETES MELLITUS
     Dosage: 500 MG, BID
     Route: 065
  3. METFORMIN HCL [Concomitant]
     Indication: DIABETES MELLITUS
     Dosage: 500 MG, BID
     Route: 065
  4. BUPRENORPHINE [Suspect]
     Indication: HERNIA
     Dosage: 5 MCG, Q1H
     Route: 062
     Dates: start: 20111010, end: 20111011
  5. SIMVASTATIN [Concomitant]
     Indication: BLOOD CHOLESTEROL INCREASED
     Dosage: 40 MG, DAILY
     Route: 065

REACTIONS (3)
  - HYPERTENSION [None]
  - CHEST PAIN [None]
  - HYPERVENTILATION [None]
